FAERS Safety Report 10186469 (Version 1)
Quarter: 2014Q2

REPORT INFORMATION
  Report Type: Spontaneous
  Country: US (occurrence: US)
  Receive Date: 20140521
  Receipt Date: 20140521
  Transmission Date: 20141212
  Serious: No
  Sender: FDA-Public Use
  Company Number: US-ASTRAZENECA-2014SE00832

PATIENT
  Age: 4 Year
  Sex: Female
  Weight: 19.1 kg

DRUGS (3)
  1. PULMICORT RESPULES [Suspect]
     Indication: BRONCHIAL HYPERREACTIVITY
     Route: 055
     Dates: start: 201304, end: 201306
  2. XOPENEX [Concomitant]
     Indication: COUGH
     Dates: start: 201312
  3. XOPENEX [Concomitant]
     Indication: WHEEZING
     Dates: start: 201312

REACTIONS (2)
  - Wheezing [Unknown]
  - Off label use [Unknown]
